FAERS Safety Report 9333276 (Version 3)
Quarter: 2013Q4

REPORT INFORMATION
  Report Type: Spontaneous
  Country: US (occurrence: US)
  Receive Date: 20130606
  Receipt Date: 20131105
  Transmission Date: 20140711
  Serious: Yes (Other)
  Sender: FDA-Public Use
  Company Number: US-BAYER-2013-066699

PATIENT
  Age: 45 Year
  Sex: Female
  Weight: 85.71 kg

DRUGS (4)
  1. MIRENA [Suspect]
     Indication: CONTRACEPTION
     Dosage: 20 MCG/24HR, CONT
     Route: 015
     Dates: start: 20100217, end: 20110525
  2. AZOPT [Concomitant]
     Indication: GLAUCOMA
     Dosage: UNK
     Dates: start: 2009
  3. FISH OIL [Concomitant]
     Dosage: UNK
     Dates: start: 20110525
  4. CALCIUM [Concomitant]
     Dosage: UNK
     Dates: start: 20110525

REACTIONS (9)
  - Uterine perforation [None]
  - Device dislocation [None]
  - Injury [None]
  - Pain [None]
  - Emotional distress [None]
  - Female genital operation [None]
  - Fear [None]
  - Anxiety [None]
  - Device issue [None]
